FAERS Safety Report 16947239 (Version 1)
Quarter: 2019Q4

REPORT INFORMATION
  Report Type: Report from Study
  Country: US (occurrence: US)
  Receive Date: 20191022
  Receipt Date: 20191022
  Transmission Date: 20200122
  Serious: No
  Sender: FDA-Public Use
  Company Number: US-BECTON DICKINSON-2018BDN00480

PATIENT
  Age: 71 Year
  Sex: Female

DRUGS (2)
  1. CHLORAPREP [Suspect]
     Active Substance: CHLORHEXIDINE GLUCONATE\ISOPROPYL ALCOHOL
     Indication: INFECTION PROPHYLAXIS
     Dosage: UNK
     Route: 061
     Dates: start: 20181006, end: 20181006
  2. CHLORASHIELD [DEVICE] [Suspect]
     Active Substance: DEVICE

REACTIONS (2)
  - Papule [Unknown]
  - Erythema [Unknown]

NARRATIVE: CASE EVENT DATE: 20181007
